FAERS Safety Report 25241618 (Version 1)
Quarter: 2025Q2

REPORT INFORMATION
  Report Type: Spontaneous
  Country: CN (occurrence: CN)
  Receive Date: 20250426
  Receipt Date: 20250426
  Transmission Date: 20250716
  Serious: Yes (Other)
  Sender: ANI
  Company Number: None

PATIENT
  Age: 15 Year
  Sex: Male
  Weight: 50 kg

DRUGS (9)
  1. FLUVOXAMINE MALEATE [Suspect]
     Active Substance: FLUVOXAMINE MALEATE
     Indication: Depression
     Route: 048
     Dates: start: 20230801, end: 20230807
  2. Zhuofu [Concomitant]
     Indication: Depression
     Route: 048
     Dates: start: 20230801, end: 20230805
  3. RISPERIDONE [Concomitant]
     Active Substance: RISPERIDONE
     Indication: Depression
     Route: 048
     Dates: start: 20230805, end: 20230807
  4. RISPERIDONE [Concomitant]
     Active Substance: RISPERIDONE
     Indication: Obsessive thoughts
     Route: 048
     Dates: start: 20230805, end: 20230807
  5. RISPERIDONE [Concomitant]
     Active Substance: RISPERIDONE
     Indication: Compulsions
     Route: 048
     Dates: start: 20230805, end: 20230807
  6. FLUVOXAMINE MALEATE [Suspect]
     Active Substance: FLUVOXAMINE MALEATE
     Indication: Obsessive thoughts
     Route: 048
     Dates: start: 20230801, end: 20230807
  7. FLUVOXAMINE MALEATE [Suspect]
     Active Substance: FLUVOXAMINE MALEATE
     Indication: Compulsions
     Route: 048
     Dates: start: 20230801, end: 20230807
  8. Zhuofu [Concomitant]
     Indication: Obsessive thoughts
     Route: 048
     Dates: start: 20230801, end: 20230805
  9. Zhuofu [Concomitant]
     Indication: Compulsions
     Route: 048
     Dates: start: 20230801, end: 20230805

REACTIONS (2)
  - Facial paralysis [Recovering/Resolving]
  - Hypertonia [Recovering/Resolving]

NARRATIVE: CASE EVENT DATE: 20230807
